FAERS Safety Report 9284047 (Version 2)
Quarter: 2013Q3

REPORT INFORMATION
  Report Type: Spontaneous
  Country: US (occurrence: US)
  Receive Date: 20130510
  Receipt Date: 20130905
  Transmission Date: 20140515
  Serious: Yes (Hospitalization, Other)
  Sender: FDA-Public Use
  Company Number: US-BAYER-2013-058221

PATIENT
  Age: 28 Year
  Sex: Female

DRUGS (16)
  1. YAZ [Suspect]
     Dosage: UNK
     Dates: start: 2004, end: 2005
  2. YASMIN [Suspect]
     Dosage: UNK
     Dates: start: 2004, end: 2005
  3. OCELLA [Suspect]
     Dosage: UNK
     Dates: start: 2004, end: 2005
  4. TOPAMAX [Concomitant]
  5. IMITREX [Concomitant]
     Indication: MIGRAINE
     Dosage: UNK UNK, PRN
  6. TORADOL [Concomitant]
  7. PROMETHAZINE [Concomitant]
     Indication: NAUSEA
     Dosage: 25 MG, 1 Q 4 H PRN
     Route: 048
  8. SULFAMETHOXAZOLE/TRIMETHOPRIM [Concomitant]
     Dosage: 800/160 ONE BID
     Route: 048
  9. PROPOXYPHENE NAPSYLATE W/ACETAMINOPHENE [Concomitant]
     Indication: PAIN
     Dosage: 100/650 ONE TO TWO Q 4 H PRN
     Route: 048
  10. NITROFURANTOIN [Concomitant]
     Dosage: 100 MG, ONE BID
     Route: 048
  11. AMBIEN [Concomitant]
     Dosage: 10 MG, ONE QD
     Route: 048
  12. CARISOPRODOL [Concomitant]
     Indication: MUSCLE SPASMS
     Dosage: 350 MG, ONE QID PRN
     Route: 048
  13. DIAZEPAM [Concomitant]
     Indication: MUSCLE SPASMS
     Dosage: 5 MG, 1-2 Q 6 H PRN
     Route: 048
  14. IBUPROFEN [Concomitant]
     Indication: SWELLING
     Dosage: 800 MG, ONE Q 8 H PRN
     Route: 048
  15. HYDROCODONE/ACETAMINOPHEN [Concomitant]
     Dosage: 7.5/325MG ONE TO TWO Q 4 H PRN
     Route: 048
  16. BACTRIM [Concomitant]

REACTIONS (9)
  - Pulmonary embolism [None]
  - Deep vein thrombosis [None]
  - Injury [None]
  - Pain [None]
  - Abdominal pain [None]
  - General physical health deterioration [None]
  - Anxiety [None]
  - Emotional distress [None]
  - Pain [None]
